FAERS Safety Report 22090146 (Version 1)
Quarter: 2023Q1

REPORT INFORMATION
  Report Type: Spontaneous
  Country: US (occurrence: None)
  Receive Date: 20230313
  Receipt Date: 20230313
  Transmission Date: 20230418
  Serious: Yes (Hospitalization)
  Sender: FDA-Public Use
  Company Number: None

PATIENT
  Age: 83 Year
  Sex: Female
  Weight: 125 kg

DRUGS (2)
  1. HERCEPTIN [Suspect]
     Active Substance: TRASTUZUMAB
     Indication: Bladder cancer
     Dosage: FREQUENCY : DAILY;?
     Route: 041
     Dates: start: 20230307
  2. PERJETA [Concomitant]
     Active Substance: PERTUZUMAB

REACTIONS (2)
  - Infusion related reaction [None]
  - Respiratory failure [None]

NARRATIVE: CASE EVENT DATE: 20230307
